FAERS Safety Report 5463672-9 (Version None)
Quarter: 2007Q3

REPORT INFORMATION
  Report Type: 
  Country: None (occurrence: None)
  Receive Date: 20070919
  Receipt Date: 20070905
  Transmission Date: 20080115
  Serious: Yes (Hospitalization)
  Sender: FDA-Public Use
  Company Number: 237536K07USA

PATIENT
  Age: 35 Year
  Sex: Female

DRUGS (2)
  1. REBIF [Suspect]
     Indication: MULTIPLE SCLEROSIS
     Dates: start: 20070101, end: 20070101
  2. BACLOFEN [Concomitant]

REACTIONS (9)
  - AMNESIA [None]
  - ANTIBODY TEST POSITIVE [None]
  - APHASIA [None]
  - HEMIPARESIS [None]
  - INSOMNIA [None]
  - MULTIPLE SCLEROSIS [None]
  - MULTIPLE SCLEROSIS RELAPSE [None]
  - SLEEP DISORDER [None]
  - THYROID NEOPLASM [None]
